FAERS Safety Report 9627520 (Version 2)
Quarter: 2013Q4

REPORT INFORMATION
  Report Type: Not Available
  Country: US (occurrence: US)
  Receive Date: 20131016
  Receipt Date: 20131016
  Transmission Date: 20140711
  Serious: Yes (Other)
  Sender: FDA-Public Use
  Company Number: US-LUNDBECK-DKLU1089155

PATIENT
  Age: 2 Year
  Sex: Male

DRUGS (9)
  1. SABRIL (FOR ORAL SOLUTION) [Suspect]
     Indication: INFANTILE SPASMS
     Dates: start: 201009
  2. SABRIL (FOR ORAL SOLUTION) [Suspect]
  3. SABRIL (FOR ORAL SOLUTION) [Suspect]
  4. SABRIL (FOR ORAL SOLUTION) [Suspect]
  5. SABRIL (FOR ORAL SOLUTION) [Suspect]
  6. SABRIL (FOR ORAL SOLUTION) [Suspect]
  7. SABRIL (FOR ORAL SOLUTION) [Suspect]
     Dates: end: 20130221
  8. DEPAKOTE [Concomitant]
     Indication: PRODUCT USED FOR UNKNOWN INDICATION
  9. KEPPRA [Concomitant]
     Indication: PRODUCT USED FOR UNKNOWN INDICATION

REACTIONS (1)
  - Convulsion [Recovering/Resolving]
